FAERS Safety Report 4556489-0 (Version None)
Quarter: 2005Q1

REPORT INFORMATION
  Report Type: 
  Country: None (occurrence: None)
  Receive Date: 20050114
  Receipt Date: 20050104
  Transmission Date: 20050727
  Serious: Yes (Hospitalization)
  Sender: FDA-Public Use
  Company Number: MK200501-0010-1

PATIENT
  Age: 41 Year
  Sex: Male

DRUGS (1)
  1. OPTIRAY 320 [Suspect]
     Indication: COMPUTERISED TOMOGRAM
     Dosage: 86 ML, SINGLE USE
     Dates: start: 20041220, end: 20041220

REACTIONS (5)
  - EYE SWELLING [None]
  - HOT FLUSH [None]
  - OEDEMA MUCOSAL [None]
  - RESTLESSNESS [None]
  - THROAT TIGHTNESS [None]
